FAERS Safety Report 25045511 (Version 1)
Quarter: 2025Q1

REPORT INFORMATION
  Report Type: Spontaneous
  Country: ID (occurrence: ID)
  Receive Date: 20250306
  Receipt Date: 20250306
  Transmission Date: 20250409
  Serious: Yes (Hospitalization, Other)
  Sender: NOVARTIS
  Company Number: ID-002147023-NVSC2025ID037355

PATIENT
  Age: 57 Year
  Sex: Male

DRUGS (1)
  1. SACUBITRIL\VALSARTAN [Suspect]
     Active Substance: SACUBITRIL\VALSARTAN
     Indication: Heart failure with reduced ejection fraction
     Route: 065

REACTIONS (16)
  - Dyspnoea [Unknown]
  - Dyspnoea paroxysmal nocturnal [Unknown]
  - Negative cardiac inotropic effect [Unknown]
  - Dyspnoea exertional [Unknown]
  - Orthopnoea [Unknown]
  - Cardiac failure [Unknown]
  - Mitral valve incompetence [Unknown]
  - Tricuspid valve incompetence [Unknown]
  - Hyperkalaemia [Unknown]
  - Type 2 diabetes mellitus [Unknown]
  - Renal impairment [Unknown]
  - Venous pressure jugular increased [Unknown]
  - Hepatomegaly [Unknown]
  - Peripheral coldness [Unknown]
  - Coronary artery disease [Unknown]
  - Hypotension [Unknown]

NARRATIVE: CASE EVENT DATE: 20250129
